FAERS Safety Report 13931750 (Version 1)
Quarter: 2017Q3

REPORT INFORMATION
  Report Type: Spontaneous
  Country: US (occurrence: US)
  Receive Date: 20170904
  Receipt Date: 20170904
  Transmission Date: 20171127
  Serious: No
  Sender: FDA-Public Use
  Company Number: US-009507513-1708USA010978

PATIENT
  Age: 22 Year
  Sex: Female
  Weight: 97.51 kg

DRUGS (1)
  1. NEXPLANON [Suspect]
     Active Substance: ETONOGESTREL
     Indication: CONTRACEPTION
     Dosage: UNK,FREQUENCY: 3 YEAR IMPLANT
     Route: 059
     Dates: start: 20161116

REACTIONS (5)
  - Contusion [Unknown]
  - Vaginal haemorrhage [Unknown]
  - Migration of implanted drug [Not Recovered/Not Resolved]
  - Rash [Unknown]
  - Device expulsion [Not Recovered/Not Resolved]

NARRATIVE: CASE EVENT DATE: 201705
